FAERS Safety Report 8360405-3 (Version None)
Quarter: 2012Q2

REPORT INFORMATION
  Report Type: 
  Country: None (occurrence: None)
  Receive Date: 20120515
  Receipt Date: 20120508
  Transmission Date: 20120825
  Serious: Yes (Hospitalization, Other)
  Sender: FDA-Public Use
  Company Number: IT-JNJFOC-20120501476

PATIENT
  Age: 91 Year
  Sex: Female

DRUGS (12)
  1. LEVOFLOXACIN [Suspect]
     Dosage: FOR 7 DAYS
     Route: 048
  2. BUPRENORPHINE [Interacting]
     Indication: PAIN
     Route: 062
  3. LASOPRAZOLE [Concomitant]
     Indication: PRODUCT USED FOR UNKNOWN INDICATION
     Route: 065
  4. ACETYLSALICYLIC ACID SRT [Concomitant]
     Indication: PLATELET AGGREGATION INHIBITION
     Route: 048
  5. ENALAPRIL MALEATE AND HYDROCHLOROTHIAZIDE [Suspect]
     Indication: HYPERTENSION
     Route: 048
  6. NADROPARIN [Interacting]
     Indication: ISCHAEMIC STROKE
     Dosage: 3800.0 UI/D
     Route: 058
  7. TRAMADOL HCL [Interacting]
     Indication: PRODUCT USED FOR UNKNOWN INDICATION
     Dosage: WHEN REQUIRED
     Route: 065
  8. INSULIN [Concomitant]
     Indication: PRODUCT USED FOR UNKNOWN INDICATION
     Route: 065
  9. LEVOFLOXACIN [Suspect]
     Indication: BACTERIAL INFECTION
     Route: 048
  10. ACETYLSALICYLIC ACID SRT [Concomitant]
     Indication: ANTICOAGULANT THERAPY
     Route: 048
  11. METFORMIN HCL [Interacting]
     Indication: TYPE 2 DIABETES MELLITUS
     Dosage: 3 X/DAY
     Route: 048
  12. GLYBURIDE [Interacting]
     Indication: TYPE 2 DIABETES MELLITUS
     Dosage: 3 X/DAY
     Route: 048

REACTIONS (5)
  - LOCALISED INFECTION [None]
  - HYPOGLYCAEMIC COMA [None]
  - DRUG INTERACTION [None]
  - BLOOD GLUCOSE DECREASED [None]
  - ARTERIAL THROMBOSIS LIMB [None]
